FAERS Safety Report 6134276-X (Version None)
Quarter: 2009Q1

REPORT INFORMATION
  Report Type: 
  Country: None (occurrence: None)
  Receive Date: 20090325
  Receipt Date: 20090316
  Transmission Date: 20090719
  Serious: Yes (Congenital Anomaly, Other)
  Sender: FDA-Public Use
  Company Number: 2009SP005839

PATIENT
  Age: 1 Day
  Sex: Male
  Weight: 3.1752 kg

DRUGS (2)
  1. RIBAVIRIN [Suspect]
     Indication: HEPATITIS C
     Dosage: TRPL
     Route: 064
     Dates: start: 20070501, end: 20071001
  2. PEGASYS [Suspect]
     Indication: HEPATITIS C
     Dosage: TRPL
     Route: 064
     Dates: start: 20070501, end: 20071001

REACTIONS (5)
  - MATERNAL DRUGS AFFECTING FOETUS [None]
  - PERSISTENT FOETAL CIRCULATION [None]
  - RESPIRATORY DISORDER [None]
  - TRISOMY 21 [None]
  - VENTRICULAR SEPTAL DEFECT [None]
